FAERS Safety Report 8764307 (Version 2)
Quarter: 2012Q4

REPORT INFORMATION
  Report Type: 
  Country: US (occurrence: US)
  Receive Date: 20120831
  Receipt Date: 20121016
  Transmission Date: 20130627
  Serious: Yes (Other)
  Sender: FDA-Public Use
  Company Number: US-PFIZER INC-2012210408

PATIENT
  Age: 29 Year
  Sex: Male
  Weight: 79.37 kg

DRUGS (8)
  1. REVATIO [Suspect]
     Indication: PULMONARY HYPERTENSION
     Dosage: 20 mg, 3x/day
     Route: 048
     Dates: start: 20120611
  2. PANCREASE [Concomitant]
     Dosage: UNK
  3. RANITIDINE [Concomitant]
     Dosage: 150 mg, UNK
  4. TOBRAMYCIN [Concomitant]
     Dosage: UNK
  5. AZITHROMYCIN [Concomitant]
     Dosage: UNK
  6. ALBUTEROL [Concomitant]
     Dosage: UNK, 3x/day
  7. ADVAIR [Concomitant]
     Dosage: UNK
  8. FLONASE [Concomitant]
     Indication: SINUSITIS
     Dosage: UNK
     Route: 045

REACTIONS (4)
  - Oxygen saturation decreased [Not Recovered/Not Resolved]
  - Heart rate increased [Not Recovered/Not Resolved]
  - Drug ineffective [Unknown]
  - Incorrect storage of drug [Unknown]
